FAERS Safety Report 5393061-7 (Version None)
Quarter: 2007Q3

REPORT INFORMATION
  Report Type: 
  Country: None (occurrence: None)
  Receive Date: 20070719
  Receipt Date: 20070709
  Transmission Date: 20080115
  Serious: Yes (Other)
  Sender: FDA-Public Use
  Company Number: 2007326343

PATIENT
  Sex: Male

DRUGS (1)
  1. MINOXIDIL [Suspect]
     Dosage: TOPICAL

REACTIONS (4)
  - HYPERSENSITIVITY [None]
  - PRURITUS [None]
  - SECRETION DISCHARGE [None]
  - SKIN DISORDER [None]
